FAERS Safety Report 7395667-2 (Version None)
Quarter: 2011Q2

REPORT INFORMATION
  Report Type: 
  Country: None (occurrence: None)
  Receive Date: 20110405
  Receipt Date: 20110328
  Transmission Date: 20111010
  Serious: Yes (Other)
  Sender: FDA-Public Use
  Company Number: US-US-EMD SERONO, INC.-7037655

PATIENT
  Sex: Male

DRUGS (4)
  1. PEPCID [Concomitant]
     Indication: PROPHYLAXIS
  2. PREDNISONE [Concomitant]
     Indication: MULTIPLE SCLEROSIS
  3. REBIF [Suspect]
     Indication: MULTIPLE SCLEROSIS
     Route: 058
     Dates: start: 20101001, end: 20110301
  4. UNSPECIFIED ANTIBIOTIC [Concomitant]
     Indication: SINUSITIS

REACTIONS (7)
  - HEADACHE [None]
  - THIRST [None]
  - RENAL IMPAIRMENT [None]
  - INFLUENZA LIKE ILLNESS [None]
  - BLOOD PRESSURE INCREASED [None]
  - OPTIC NEURITIS [None]
  - DRY MOUTH [None]
